FAERS Safety Report 8558843-9 (Version None)
Quarter: 2012Q3

REPORT INFORMATION
  Report Type: 
  Country: None (occurrence: None)
  Receive Date: 20120801
  Receipt Date: 20120724
  Transmission Date: 20120928
  Serious: Yes (Other)
  Sender: FDA-Public Use
  Company Number: HR-B.I. PHARMACEUTICALS,INC./RIDGEFIELD-2012-AP-00608AP

PATIENT
  Age: 85 Year
  Sex: Female
  Weight: 68 kg

DRUGS (5)
  1. MELOXICAM [Suspect]
     Indication: ARTHROPATHY
     Dosage: 15 MG
     Route: 048
     Dates: start: 20120504, end: 20120505
  2. PINOX (LERCANIDIPINE, HYDROCHLORIDE) [Concomitant]
     Indication: ESSENTIAL HYPERTENSION
     Dosage: 10 MG
  3. NORMABEL (DIAZEPAM) [Concomitant]
     Indication: ANXIETY DISORDER
     Dosage: 10 MG
  4. BUSCOL (HYOSCINE, BUTYLBROMIDE) [Concomitant]
     Indication: GASTRITIS
     Dosage: 10 MG
  5. LEVOTHYROXINE SODIUM [Concomitant]
     Indication: HYPOTHYROIDISM
     Dosage: 50 MCG

REACTIONS (2)
  - ABDOMINAL PAIN [None]
  - FAECES DISCOLOURED [None]
